FAERS Safety Report 8378142-8 (Version None)
Quarter: 2012Q2

REPORT INFORMATION
  Report Type: 
  Country: None (occurrence: None)
  Receive Date: 20120522
  Receipt Date: 20120509
  Transmission Date: 20120825
  Serious: Yes (Other)
  Sender: FDA-Public Use
  Company Number: GB-MYLANLABS-2012S1009943

PATIENT
  Age: 17 Month
  Sex: Female

DRUGS (2)
  1. MELPHALAN [Suspect]
     Indication: RETINOBLASTOMA UNILATERAL
     Dosage: 5MG AS 30-MIN INTRA-OPHTHALMIC ARTERIAL INFUSION
     Route: 013
  2. HEPARIN [Concomitant]
     Indication: ANTICOAGULANT THERAPY
     Route: 013

REACTIONS (4)
  - ANAPHYLACTOID REACTION [None]
  - ORBITAL OEDEMA [None]
  - CRANIAL NERVE DISORDER [None]
  - RETINAL DEPIGMENTATION [None]
